FAERS Safety Report 15839626 (Version 1)
Quarter: 2019Q1

REPORT INFORMATION
  Report Type: Spontaneous
  Country: GB (occurrence: GB)
  Receive Date: 20190117
  Receipt Date: 20190117
  Transmission Date: 20190417
  Serious: Yes (Other)
  Sender: FDA-Public Use
  Company Number: GB-TEVA-2019-GB-999014

PATIENT
  Age: 70 Year
  Sex: Female
  Weight: 63 kg

DRUGS (1)
  1. TRIMETHOPRIM. [Suspect]
     Active Substance: TRIMETHOPRIM
     Indication: URINARY TRACT INFECTION
     Dosage: 1600 MILLIGRAM DAILY; FOR 3 DAYS
     Route: 048
     Dates: start: 20181222, end: 20181223

REACTIONS (5)
  - Fatigue [Recovered/Resolved]
  - Chills [Recovered/Resolved]
  - Nausea [Recovering/Resolving]
  - Tension headache [Recovered/Resolved]
  - Pyrexia [Recovered/Resolved]

NARRATIVE: CASE EVENT DATE: 20181222
